FAERS Safety Report 10087129 (Version 1)
Quarter: 2014Q2

REPORT INFORMATION
  Report Type: Report from Study
  Country: US (occurrence: US)
  Receive Date: 20140418
  Receipt Date: 20140418
  Transmission Date: 20141212
  Serious: Yes (Death)
  Sender: FDA-Public Use
  Company Number: US-ASTELLAS-2014US003801

PATIENT
  Sex: Male

DRUGS (2)
  1. ERLOTINIB [Suspect]
     Indication: PRODUCT USED FOR UNKNOWN INDICATION
     Route: 065
  2. ERLOTINIB [Suspect]
     Route: 065

REACTIONS (2)
  - Death [Fatal]
  - Dehydration [Unknown]
